FAERS Safety Report 24277001 (Version 1)
Quarter: 2024Q3

REPORT INFORMATION
  Report Type: Spontaneous
  Country: US (occurrence: US)
  Receive Date: 20240903
  Receipt Date: 20240903
  Transmission Date: 20241016
  Serious: Yes (Hospitalization)
  Sender: NOVARTIS
  Company Number: US-002147023-NVSC2024US175161

PATIENT
  Age: 63 Year
  Sex: Male

DRUGS (2)
  1. EVEROLIMUS [Suspect]
     Active Substance: EVEROLIMUS
     Indication: Product used for unknown indication
     Dosage: UNK
     Route: 065
  2. LENVIMA [Suspect]
     Active Substance: LENVATINIB
     Indication: Renal cancer
     Dosage: 18 MG, QD
     Route: 048

REACTIONS (9)
  - Infection [Unknown]
  - Blood pressure decreased [Unknown]
  - Fatigue [Unknown]
  - Constipation [Unknown]
  - Diarrhoea [Unknown]
  - Nausea [Unknown]
  - Eating disorder [Unknown]
  - Dyspnoea [Unknown]
  - Product dose omission issue [Unknown]
